FAERS Safety Report 7941602-5 (Version None)
Quarter: 2011Q4

REPORT INFORMATION
  Report Type: 
  Country: None (occurrence: None)
  Receive Date: 20111128
  Receipt Date: 20111115
  Transmission Date: 20120403
  Serious: Yes (Hospitalization)
  Sender: FDA-Public Use
  Company Number: JP-SANOFI-AVENTIS-2011SA057172

PATIENT
  Age: 71 Year
  Sex: Male
  Weight: 56 kg

DRUGS (16)
  1. CANDESARTAN CILEXETIL [Suspect]
     Route: 048
     Dates: start: 20110827, end: 20110901
  2. DEPAS [Suspect]
     Route: 048
     Dates: start: 20110827, end: 20110901
  3. OMEPRAZOLE [Suspect]
     Route: 048
     Dates: start: 20110827, end: 20110901
  4. UROLOGICALS [Concomitant]
     Route: 048
     Dates: start: 20101005
  5. DEPAS [Suspect]
     Indication: INSOMNIA
     Route: 048
     Dates: end: 20110804
  6. CANDESARTAN CILEXETIL [Suspect]
     Indication: HYPERTENSION
     Route: 048
     Dates: start: 20110406, end: 20110804
  7. CRESTOR [Suspect]
     Route: 048
     Dates: start: 20110827, end: 20110901
  8. OMEPRAZOLE [Suspect]
     Route: 048
     Dates: start: 20110406, end: 20110804
  9. ALLOPURINOL [Suspect]
     Indication: HYPERURICAEMIA
     Route: 048
     Dates: end: 20110804
  10. ALLOPURINOL [Suspect]
     Route: 048
     Dates: start: 20110827, end: 20110901
  11. ASPIRIN [Concomitant]
     Indication: ANGINA UNSTABLE
     Route: 048
     Dates: start: 20100427
  12. ALL OTHER THERAPEUTIC PRODUCTS [Concomitant]
     Route: 048
     Dates: start: 20110719
  13. ADALAT [Concomitant]
     Indication: HYPERTENSION
     Route: 048
     Dates: end: 20110706
  14. PLAVIX [Suspect]
     Indication: ANGINA UNSTABLE
     Route: 048
     Dates: start: 20100427, end: 20110804
  15. PLAVIX [Suspect]
     Route: 048
     Dates: start: 20110827, end: 20110901
  16. CRESTOR [Suspect]
     Indication: HYPERLIPIDAEMIA
     Route: 048
     Dates: start: 20110706, end: 20110804

REACTIONS (1)
  - INTERSTITIAL LUNG DISEASE [None]
